FAERS Safety Report 21373134 (Version 2)
Quarter: 2022Q4

REPORT INFORMATION
  Report Type: Spontaneous
  Country: US (occurrence: US)
  Receive Date: 20220924
  Receipt Date: 20221223
  Transmission Date: 20230113
  Serious: No
  Sender: FDA-Public Use
  Company Number: US-CTI BIOPHARMA-2022US02863

PATIENT

DRUGS (1)
  1. VONJO [Suspect]
     Active Substance: PACRITINIB
     Indication: Myeloproliferative neoplasm
     Dosage: 200 MILLIGRAM, BID
     Route: 048
     Dates: start: 20220522

REACTIONS (14)
  - Diarrhoea [Unknown]
  - Asthenia [Unknown]
  - Fall [Unknown]
  - Depression [Unknown]
  - Chest pain [Unknown]
  - Dyspnoea [Unknown]
  - Breath sounds abnormal [Unknown]
  - Pneumonia [Unknown]
  - Cough [Unknown]
  - Product dose omission issue [Unknown]
  - Insomnia [None]
  - Haemoglobin decreased [None]
  - Bronchitis [Unknown]
  - Transfusion [None]
